FAERS Safety Report 22277152 (Version 4)
Quarter: 2023Q4

REPORT INFORMATION
  Report Type: Spontaneous
  Country: CA (occurrence: CA)
  Receive Date: 20230503
  Receipt Date: 20231120
  Transmission Date: 20240110
  Serious: Yes (Other)
  Sender: FDA-Public Use
  Company Number: CA-CELLTRION INC.-2023CA007712

PATIENT

DRUGS (10)
  1. INFLECTRA [Suspect]
     Active Substance: INFLIXIMAB-DYYB
     Indication: Crohn^s disease
     Dosage: 5 MG/KG, (0, 2, 6  THEN EVERY 8 WEEKS)
     Route: 042
     Dates: start: 20230407, end: 20230407
  2. INFLECTRA [Suspect]
     Active Substance: INFLIXIMAB-DYYB
     Dosage: 490 MG, (0, 2, 6  THEN EVERY 8 WEEKS)
     Route: 042
     Dates: start: 20230419
  3. INFLECTRA [Suspect]
     Active Substance: INFLIXIMAB-DYYB
     Dosage: 490 MG, (0, 2, 6  THEN EVERY 8 WEEKS)
     Route: 042
     Dates: start: 20230419
  4. INFLECTRA [Suspect]
     Active Substance: INFLIXIMAB-DYYB
     Dosage: 505 (5MG/KG), (0, 2, 6  THEN EVERY 8 WEEKS)
     Route: 042
     Dates: start: 20230517
  5. INFLECTRA [Suspect]
     Active Substance: INFLIXIMAB-DYYB
     Dosage: 505 MG, EVERY 8 WEEKS
     Route: 042
     Dates: start: 20230712
  6. INFLECTRA [Suspect]
     Active Substance: INFLIXIMAB-DYYB
     Dosage: 5 MG/KG, 8 WEEKS  (480MG)
     Route: 042
     Dates: start: 20230906
  7. INFLECTRA [Suspect]
     Active Substance: INFLIXIMAB-DYYB
     Dosage: 490 MG (9 WEEKS)
     Route: 042
     Dates: start: 20231110
  8. AZATHIOPRINE [Concomitant]
     Active Substance: AZATHIOPRINE
     Dosage: UNK
  9. CHOLECALCIFEROL [Concomitant]
     Active Substance: CHOLECALCIFEROL
     Dosage: UNK
  10. VITAMIN C [Concomitant]
     Active Substance: ASCORBIC ACID
     Dosage: UNK

REACTIONS (7)
  - Bradycardia [Unknown]
  - Condition aggravated [Recovering/Resolving]
  - Therapeutic response shortened [Recovering/Resolving]
  - Heart rate decreased [Not Recovered/Not Resolved]
  - Fall [Recovered/Resolved]
  - Arthralgia [Recovering/Resolving]
  - Off label use [Unknown]

NARRATIVE: CASE EVENT DATE: 20230101
